FAERS Safety Report 6355311-X (Version None)
Quarter: 2009Q3

REPORT INFORMATION
  Report Type: 
  Country: None (occurrence: None)
  Receive Date: 20090914
  Receipt Date: 20090902
  Transmission Date: 20100115
  Serious: Yes (Hospitalization, Other)
  Sender: FDA-Public Use
  Company Number: PHHY2009GB38069

PATIENT
  Age: 72 Year
  Sex: Female

DRUGS (11)
  1. DICLOFENAC SODIUM [Suspect]
     Indication: ANALGESIA
     Dosage: 50 MG, TID
     Route: 048
     Dates: start: 20090810
  2. DABIGATRAN [Suspect]
     Indication: PROPHYLAXIS
     Dosage: 200 MG, QD
     Route: 048
     Dates: start: 20090810, end: 20090825
  3. ALVERINE CITRATE [Concomitant]
  4. ASPIRIN [Concomitant]
  5. BENDROFLUMETHIAZIDE [Concomitant]
  6. CALCEOS [Concomitant]
  7. LACTULOSE [Concomitant]
  8. PARACETAMOL [Concomitant]
  9. RANITIDINE [Concomitant]
  10. SENNA [Concomitant]
  11. SIMVASTATIN [Concomitant]

REACTIONS (5)
  - DUODENAL ULCER HAEMORRHAGE [None]
  - FALL [None]
  - HAEMATEMESIS [None]
  - HAEMOGLOBIN DECREASED [None]
  - MELAENA [None]
